FAERS Safety Report 11706053 (Version 1)
Quarter: 2015Q4

REPORT INFORMATION
  Report Type: Spontaneous
  Country: FR (occurrence: FR)
  Receive Date: 20151106
  Receipt Date: 20151106
  Transmission Date: 20160304
  Serious: Yes (Death, Hospitalization)
  Sender: FDA-Public Use
  Company Number: FR-PFIZER INC-2015375119

PATIENT
  Age: 69 Year
  Sex: Male

DRUGS (15)
  1. TAZOCILLINE [Suspect]
     Active Substance: PIPERACILLIN SODIUM\TAZOBACTAM SODIUM
     Dosage: UNK
     Route: 042
     Dates: start: 20150821, end: 20150906
  2. APROVEL [Concomitant]
     Active Substance: IRBESARTAN
     Dosage: 300 MG, DAILY
  3. HYPERIUM [Concomitant]
     Active Substance: RILMENIDINE PHOSPHATE
     Dosage: 1 MG, 2X/DAY
  4. EUPRESSYL /00631801/ [Concomitant]
     Active Substance: URAPIDIL
     Dosage: 60 MG, 3X/DAY
  5. KAYEXALATE [Concomitant]
     Active Substance: SODIUM POLYSTYRENE SULFONATE
     Dosage: 0.5 DF, 1X/DAY
  6. LASILIX /00032601/ [Concomitant]
     Active Substance: FUROSEMIDE
     Dosage: 120 MG, DAILY
  7. PREVISCAN /00261401/ [Concomitant]
     Active Substance: PENTOXIFYLLINE
     Dosage: 20 MG, DAILY
  8. TARDYFERON [Concomitant]
     Active Substance: FERROUS SULFATE\FOLIC ACID
     Dosage: 80 MG, DAILY
  9. NEBIVOLOL. [Concomitant]
     Active Substance: NEBIVOLOL
     Dosage: 5 MG, DAILY
  10. LERCAN [Concomitant]
     Active Substance: LERCANIDIPINE
     Dosage: 20 MG, DAILY
  11. ZOCOR [Concomitant]
     Active Substance: SIMVASTATIN
     Dosage: 10 MG, DAILY
  12. CORDARONE [Concomitant]
     Active Substance: AMIODARONE HYDROCHLORIDE
     Dosage: 200 MG, 5X/DAY
  13. INEXIUM /01479302/ [Concomitant]
     Active Substance: ESOMEPRAZOLE MAGNESIUM
     Dosage: 20 MG, DAILY
  14. NOVONORM [Concomitant]
     Active Substance: REPAGLINIDE
     Dosage: 8.5 MG, DAILY
  15. PARACETAMOL [Concomitant]
     Active Substance: ACETAMINOPHEN

REACTIONS (3)
  - C-reactive protein increased [Unknown]
  - Thrombocytopenia [Unknown]
  - Hypothermia [Recovered/Resolved]

NARRATIVE: CASE EVENT DATE: 20150905
